FAERS Safety Report 4528842-2 (Version None)
Quarter: 2004Q4

REPORT INFORMATION
  Report Type: 
  Country: None (occurrence: None)
  Receive Date: 20041214
  Receipt Date: 20041203
  Transmission Date: 20050328
  Serious: Yes (Life-Threatening, Hospitalization)
  Sender: FDA-Public Use
  Company Number: GBWYE261407DEC04

PATIENT
  Age: 47 Year
  Sex: Female

DRUGS (3)
  1. ADVIL [Suspect]
     Indication: OSTEOARTHRITIS
     Dosage: 1200-1600MG DAILY ORAL
     Route: 048
     Dates: start: 20040101, end: 20041109
  2. BENDROFLUMETHIAZIDE (BENDROFLUMETHIAZIDE) [Concomitant]
  3. VITAMIN C (ASCORBIC ACID) [Concomitant]

REACTIONS (3)
  - HAEMORRHAGE [None]
  - IDIOPATHIC THROMBOCYTOPENIC PURPURA [None]
  - VOMITING [None]
